FAERS Safety Report 4680749-6 (Version None)
Quarter: 2005Q2

REPORT INFORMATION
  Report Type: 
  Country: None (occurrence: None)
  Receive Date: 20050601
  Receipt Date: 20050520
  Transmission Date: 20051028
  Serious: Yes (Disabling)
  Sender: FDA-Public Use
  Company Number: 2005063800

PATIENT
  Age: 61 Year
  Sex: Male

DRUGS (5)
  1. EPIRUBICIN [Suspect]
     Indication: LYMPHOMA
     Dosage: 50 MG, INTRAVENOUS
     Route: 042
  2. RITUXAN [Suspect]
     Indication: LYMPHOMA
     Dosage: INTRAVENOUS
     Route: 042
  3. CYCLOPHOSPHAMIDE [Concomitant]
  4. ONCOVIN [Concomitant]
  5. PREDNISOLONE [Concomitant]

REACTIONS (3)
  - AMNESIA [None]
  - CONDITION AGGRAVATED [None]
  - DEMENTIA [None]
